FAERS Safety Report 24181245 (Version 3)
Quarter: 2024Q3

REPORT INFORMATION
  Report Type: Report from Study
  Country: NL (occurrence: NL)
  Receive Date: 20240807
  Receipt Date: 20240913
  Transmission Date: 20241016
  Serious: Yes (Hospitalization)
  Sender: ABBVIE
  Company Number: NL-ABBVIE-5863989

PATIENT
  Sex: Male

DRUGS (9)
  1. CARBIDOPA\LEVODOPA [Suspect]
     Active Substance: CARBIDOPA\LEVODOPA
     Indication: Parkinson^s disease
     Dosage: END: 1.0 ML, CND: 2.7 ML/H. REMAINS AT 24 HOURS
     Route: 050
     Dates: start: 20240806
  2. CARBIDOPA\LEVODOPA [Suspect]
     Active Substance: CARBIDOPA\LEVODOPA
     Dosage: DURATION: REMAINS AT 16 HOURS, END DATE 2023
     Route: 050
     Dates: start: 20230126
  3. CARBIDOPA\LEVODOPA [Suspect]
     Active Substance: CARBIDOPA\LEVODOPA
     Dosage: MD: 10.0 ML; CD: 4.9 ML/H; ED: 1.0 ML; CND: 2.7 ML/H; END: 1.0 ML?DURATION: REMAINS AT 24 HOURS
     Route: 050
     Dates: start: 20231120, end: 20240206
  4. CARBIDOPA\LEVODOPA [Suspect]
     Active Substance: CARBIDOPA\LEVODOPA
     Dosage: MD: 8.5 ML; CD: 4.9 ML/H; ED: 1.0 ML; DURATION: REMAINS AT 24 HOURS
     Route: 050
     Dates: start: 20240206, end: 20240601
  5. CARBIDOPA\LEVODOPA [Suspect]
     Active Substance: CARBIDOPA\LEVODOPA
     Dosage: END: 1.00 ML, CND: 2.7 ML/H, DURATION: REMAINS AT 24 HOURS
     Route: 050
     Dates: start: 20231002, end: 20231120
  6. CARBIDOPA\LEVODOPA [Suspect]
     Active Substance: CARBIDOPA\LEVODOPA
     Dosage: MD: 8.4 ML; CD: 4.9 ML/H; ED: 1.0 ML; REMAINS AT 24 HOURS
     Route: 050
     Dates: start: 20240601, end: 20240806
  7. ROPINIROLE [Concomitant]
     Active Substance: ROPINIROLE
     Indication: Parkinson^s disease
     Dosage: FREQUENCY TEXT: 1 TIME PER DAY 4 MILLIGRAM
     Route: 048
  8. CARBIDOPA\ENTACAPONE\LEVODOPA [Concomitant]
     Active Substance: CARBIDOPA\ENTACAPONE\LEVODOPA
     Indication: Parkinson^s disease
     Dosage: DURATION: 24 HOURS THERAPY
     Route: 048
     Dates: end: 20240126
  9. POLYETHYLENE GLYCOLS [Concomitant]
     Active Substance: POLYETHYLENE GLYCOLS
     Indication: Gastrointestinal motility disorder

REACTIONS (22)
  - Parkinson^s disease [Recovered/Resolved]
  - Enteral nutrition [Recovered/Resolved]
  - Decreased appetite [Not Recovered/Not Resolved]
  - C-reactive protein increased [Recovered/Resolved]
  - Unevaluable event [Not Recovered/Not Resolved]
  - General physical health deterioration [Recovered/Resolved]
  - Hypokalaemia [Recovered/Resolved]
  - Middle insomnia [Unknown]
  - Hypophagia [Recovered/Resolved]
  - Hypophosphataemia [Recovered/Resolved]
  - Dyskinesia [Recovered/Resolved]
  - Hallucination [Recovering/Resolving]
  - Abnormal dreams [Recovering/Resolving]
  - Stoma site reaction [Not Recovered/Not Resolved]
  - Unevaluable event [Recovering/Resolving]
  - Bowel movement irregularity [Not Recovered/Not Resolved]
  - Back pain [Not Recovered/Not Resolved]
  - Muscle rigidity [Not Recovered/Not Resolved]
  - Anxiety [Not Recovered/Not Resolved]
  - Weight decreased [Recovered/Resolved]
  - Memory impairment [Recovering/Resolving]
  - Disturbance in attention [Recovering/Resolving]

NARRATIVE: CASE EVENT DATE: 20240726
